FAERS Safety Report 9423456 (Version 1)
Quarter: 2013Q3

REPORT INFORMATION
  Report Type: Spontaneous
  Country: US (occurrence: US)
  Receive Date: 20130726
  Receipt Date: 20130726
  Transmission Date: 20140515
  Serious: No
  Sender: FDA-Public Use
  Company Number: US-GALDERMA-US13001130

PATIENT
  Age: 7 Year
  Sex: Female

DRUGS (3)
  1. DIFFERIN (ADAPALENE) GEL, 0.3% [Suspect]
     Indication: MOLLUSCUM CONTAGIOSUM
     Route: 061
     Dates: start: 201303, end: 20130409
  2. NEUTROGENA BODY WASH [Concomitant]
     Indication: THERAPEUTIC SKIN CARE TOPICAL
     Route: 061
  3. EUCERIN MOISTURIZER WITH SUNSCREEN [Concomitant]
     Indication: PROPHYLAXIS AGAINST SOLAR RADIATION
     Route: 061

REACTIONS (5)
  - Urticaria [Recovered/Resolved]
  - Erythema [Not Recovered/Not Resolved]
  - Skin burning sensation [Not Recovered/Not Resolved]
  - Off label use [Recovered/Resolved]
  - Drug administered to patient of inappropriate age [Recovered/Resolved]
